FAERS Safety Report 10207111 (Version 1)
Quarter: 2014Q2

REPORT INFORMATION
  Report Type: Spontaneous
  Country: US (occurrence: US)
  Receive Date: 20140530
  Receipt Date: 20140530
  Transmission Date: 20141212
  Serious: Yes (Other)
  Sender: FDA-Public Use
  Company Number: US-SA-2014SA068252

PATIENT
  Age: 52 Year
  Sex: Female

DRUGS (3)
  1. LANTUS SOLOSTAR [Suspect]
     Indication: TYPE 2 DIABETES MELLITUS
     Dosage: DOSE:40 UNIT(S)
     Route: 058
     Dates: start: 1997
  2. SOLOSTAR [Concomitant]
     Dates: start: 1997
  3. LORAZEPAM [Concomitant]

REACTIONS (3)
  - Cerebrovascular accident [Unknown]
  - Tooth extraction [Unknown]
  - Off label use [Unknown]
